FAERS Safety Report 4504511-X (Version None)
Quarter: 2004Q4

REPORT INFORMATION
  Report Type: 
  Country: None (occurrence: None)
  Receive Date: 20041116
  Receipt Date: 20041105
  Transmission Date: 20050328
  Serious: Yes (Death, Hospitalization)
  Sender: FDA-Public Use
  Company Number: STA-AE-04-MTX-549

PATIENT
  Age: 68 Year
  Sex: Female

DRUGS (5)
  1. METHOTREXATE [Suspect]
     Indication: RHEUMATOID ARTHRITIS
     Dosage: 15 MG X PER 1 WK, ORAL
     Route: 048
     Dates: start: 20020301, end: 20030920
  2. REMICADE [Concomitant]
  3. CELEBREX [Concomitant]
  4. ASPIRIN [Concomitant]
  5. PREDNISONE [Concomitant]

REACTIONS (3)
  - ACUTE RESPIRATORY DISTRESS SYNDROME [None]
  - INTERSTITIAL LUNG DISEASE [None]
  - PNEUMONIA [None]
